FAERS Safety Report 13211344 (Version 4)
Quarter: 2018Q3

REPORT INFORMATION
  Report Type: Spontaneous
  Country: US (occurrence: US)
  Receive Date: 20170210
  Receipt Date: 20180917
  Transmission Date: 20181010
  Serious: No
  Sender: FDA-Public Use
  Company Number: US-PFIZER INC-2017058469

PATIENT
  Age: 8 Year
  Sex: Male
  Weight: 29 kg

DRUGS (4)
  1. GENOTROPIN [Suspect]
     Active Substance: SOMATROPIN
     Indication: GROWTH RETARDATION
  2. GENOTROPIN MQ [Suspect]
     Active Substance: SOMATROPIN
     Indication: GROWTH RETARDATION
     Dosage: 14 MG INJECTION EVERY NIGHT IN ARMS, LEGS, OR BUTT
  3. GENOTROPIN MQ [Suspect]
     Active Substance: SOMATROPIN
     Indication: GROWTH RETARDATION
     Dosage: 1.8 MG, DAILY
     Dates: start: 20160518
  4. GENOTROPIN MQ [Suspect]
     Active Substance: SOMATROPIN
     Indication: SILVER-RUSSELL SYNDROME
     Dosage: 1.8 ML, 1X/DAY

REACTIONS (7)
  - Drug dose omission [Not Recovered/Not Resolved]
  - Blood triglycerides increased [Unknown]
  - Malaise [Recovering/Resolving]
  - Drug dispensing error [Unknown]
  - Asthenia [Unknown]
  - Blood cholesterol increased [Unknown]
  - Vitamin D decreased [Unknown]

NARRATIVE: CASE EVENT DATE: 201604
